FAERS Safety Report 13244065 (Version 1)
Quarter: 2017Q1

REPORT INFORMATION
  Report Type: Spontaneous
  Country: US (occurrence: US)
  Receive Date: 20170216
  Receipt Date: 20170216
  Transmission Date: 20170428
  Serious: No
  Sender: FDA-Public Use
  Company Number: US-RELYPSA-RLY2016004690

PATIENT
  Age: 79 Year
  Sex: Female

DRUGS (5)
  1. ATORVASTATIN [Concomitant]
     Active Substance: ATORVASTATIN
  2. LEVOTHYROXINE. [Concomitant]
     Active Substance: LEVOTHYROXINE
  3. VALSARTAN. [Concomitant]
     Active Substance: VALSARTAN
  4. ATENOLOL. [Concomitant]
     Active Substance: ATENOLOL
  5. VELTASSA [Suspect]
     Active Substance: PATIROMER
     Indication: BLOOD POTASSIUM INCREASED
     Dosage: 8.4 G, QD
     Route: 048
     Dates: start: 20161213, end: 20170110

REACTIONS (2)
  - Constipation [Not Recovered/Not Resolved]
  - Faeces hard [Unknown]

NARRATIVE: CASE EVENT DATE: 201612
